FAERS Safety Report 20716454 (Version 1)
Quarter: 2022Q2

REPORT INFORMATION
  Report Type: Spontaneous
  Country: US (occurrence: US)
  Receive Date: 20220416
  Receipt Date: 20220416
  Transmission Date: 20220721
  Serious: No
  Sender: FDA-Public Use
  Company Number: US-drreddys-SPO/USA/22/0148828

PATIENT
  Age: 23 Year
  Sex: Female

DRUGS (2)
  1. ZENATANE [Suspect]
     Active Substance: ISOTRETINOIN
     Indication: Product used for unknown indication
     Dosage: RMA ISSUE DATE:03 DECEMBER 2021 12:00:00 AM,05 JANUARY 2022 02:22:02 PM
  2. ZENATANE [Suspect]
     Active Substance: ISOTRETINOIN
     Dosage: RMA ISSUE DATE:03 FEBRUARY 2022 09:31:24 AM,03 MARCH 2022 10:10:23 AM

REACTIONS (1)
  - Treatment noncompliance [Unknown]
